FAERS Safety Report 4294689-8 (Version None)
Quarter: 2004Q1

REPORT INFORMATION
  Report Type: 
  Country: None (occurrence: None)
  Receive Date: 20040213
  Receipt Date: 20040206
  Transmission Date: 20041129
  Serious: Yes (Other)
  Sender: FDA-Public Use
  Company Number: US-BRISTOL-MYERS SQUIBB COMPANY-12498309

PATIENT
  Age: 55 Year
  Sex: Female
  Weight: 113 kg

DRUGS (5)
  1. TRAZODONE HCL [Suspect]
     Route: 048
     Dates: start: 20031219, end: 20040205
  2. BUSPAR [Concomitant]
  3. NORVASC [Concomitant]
  4. ZOLOFT [Concomitant]
  5. LIPITOR [Concomitant]

REACTIONS (1)
  - ANGIONEUROTIC OEDEMA [None]
